FAERS Safety Report 6890642-6 (Version None)
Quarter: 2010Q3

REPORT INFORMATION
  Report Type: 
  Country: None (occurrence: None)
  Receive Date: 20100731
  Receipt Date: 20090121
  Transmission Date: 20110219
  Serious: No
  Sender: FDA-Public Use
  Company Number: US-PFIZER INC-2009159377

PATIENT
  Sex: Female

DRUGS (4)
  1. LIPITOR [Suspect]
     Route: 048
     Dates: start: 20080101, end: 20080101
  2. DARVOCET [Concomitant]
     Indication: PAIN
     Dosage: 100 MG, UNK
  3. IMITREX [Concomitant]
     Indication: MIGRAINE
     Dosage: UNK
  4. RANITIDINE HYDROCHLORIDE [Concomitant]
     Indication: GASTROOESOPHAGEAL REFLUX DISEASE
     Dosage: UNK

REACTIONS (3)
  - EYE IRRITATION [None]
  - EYE PAIN [None]
  - VISION BLURRED [None]
